FAERS Safety Report 24357087 (Version 1)
Quarter: 2024Q3

REPORT INFORMATION
  Report Type: Spontaneous
  Country: CN (occurrence: CN)
  Receive Date: 20240924
  Receipt Date: 20240924
  Transmission Date: 20241016
  Serious: Yes (Life-Threatening, Hospitalization, Disabling)
  Sender: BAYER
  Company Number: CN-BAYER-2024A135695

PATIENT
  Age: 61 Year
  Sex: Male
  Weight: 57.9 kg

DRUGS (1)
  1. ULTRAVIST [Suspect]
     Active Substance: IOPROMIDE
     Indication: Computerised tomogram abdomen
     Dosage: 75 ML, ONCE, PUMP INJECTION
     Route: 040
     Dates: start: 20240919, end: 20240919

REACTIONS (4)
  - Rash pruritic [Recovering/Resolving]
  - Skin temperature increased [Recovering/Resolving]
  - Blood pressure decreased [Recovered/Resolved]
  - Respiratory rate increased [None]

NARRATIVE: CASE EVENT DATE: 20240919
